FAERS Safety Report 7443231-9 (Version None)
Quarter: 2011Q2

REPORT INFORMATION
  Report Type: 
  Country: None (occurrence: None)
  Receive Date: 20110428
  Receipt Date: 20110419
  Transmission Date: 20111010
  Serious: Yes (Death, Disabling)
  Sender: FDA-Public Use
  Company Number: B0714897A

PATIENT
  Sex: Male
  Weight: 63 kg

DRUGS (10)
  1. ALKERAN [Suspect]
     Indication: STEM CELL TRANSPLANT
     Dosage: 30MGM2 PER DAY
     Route: 042
     Dates: start: 20020701, end: 20020701
  2. ALKERAN [Suspect]
     Dosage: 30MGM2 PER DAY
     Route: 042
     Dates: start: 20020704, end: 20020704
  3. ALKERAN [Suspect]
     Dosage: 30MGM2 PER DAY
     Route: 042
     Dates: start: 20020709, end: 20020709
  4. PRIMPERAN TAB [Concomitant]
     Dates: start: 20020627
  5. FLUDARA [Concomitant]
     Indication: STEM CELL TRANSPLANT
     Dosage: 30MGM2 PER DAY
     Route: 042
     Dates: start: 20020705, end: 20020707
  6. METHOTREXATE [Concomitant]
     Indication: IMMUNOSUPPRESSION
     Dosage: 10MGM2 PER DAY
     Route: 065
     Dates: start: 20020713, end: 20020718
  7. TACROLIMUS HYDRATE [Suspect]
     Indication: IMMUNOSUPPRESSION
     Route: 065
     Dates: start: 20020711
  8. FRAGMIN [Concomitant]
     Dosage: 5IU3 PER DAY
     Route: 042
     Dates: start: 20020704
  9. METHYLPREDNISOLONE [Suspect]
     Route: 065
  10. THIOTEPA [Suspect]
     Indication: STEM CELL TRANSPLANT
     Dosage: 180MGM2 PER DAY
     Dates: start: 20020702, end: 20020702

REACTIONS (8)
  - PYREXIA [None]
  - C-REACTIVE PROTEIN INCREASED [None]
  - ACUTE GRAFT VERSUS HOST DISEASE [None]
  - ASPERGILLOSIS [None]
  - VENOOCCLUSIVE LIVER DISEASE [None]
  - BRAIN NEOPLASM [None]
  - PNEUMOCYSTIS JIROVECI PNEUMONIA [None]
  - PNEUMONIA [None]
